FAERS Safety Report 20054209 (Version 1)
Quarter: 2021Q4

REPORT INFORMATION
  Report Type: Spontaneous
  Country: US (occurrence: None)
  Receive Date: 20211109
  Receipt Date: 20211109
  Transmission Date: 20220303
  Serious: Yes (Death)
  Sender: FDA-Public Use
  Company Number: None

PATIENT
  Age: 73 Year
  Sex: Male

DRUGS (1)
  1. RETACRIT [Suspect]
     Active Substance: EPOETIN ALFA-EPBX
     Indication: Plasma cell myeloma in remission
     Dosage: FREQUENCY : WEEKLY;?
     Route: 058
     Dates: end: 20211104

REACTIONS (1)
  - Death [None]

NARRATIVE: CASE EVENT DATE: 20211104
